FAERS Safety Report 8057059-2 (Version None)
Quarter: 2012Q1

REPORT INFORMATION
  Report Type: 
  Country: None (occurrence: None)
  Receive Date: 20120119
  Receipt Date: 20120112
  Transmission Date: 20120608
  Serious: Yes (Other)
  Sender: FDA-Public Use
  Company Number: US-US-EMD SERONO, INC.-7106591

PATIENT
  Sex: Female

DRUGS (1)
  1. REBIF [Suspect]
     Indication: PRODUCT USED FOR UNKNOWN INDICATION
     Route: 058
     Dates: start: 20050826

REACTIONS (8)
  - MASTECTOMY [None]
  - MEMORY IMPAIRMENT [None]
  - UPPER LIMB FRACTURE [None]
  - INJECTION SITE REACTION [None]
  - POSTOPERATIVE WOUND INFECTION [None]
  - VISUAL ACUITY REDUCED [None]
  - INJECTION SITE SCAR [None]
  - FALL [None]
